FAERS Safety Report 9235906 (Version 2)
Quarter: 2013Q2

REPORT INFORMATION
  Report Type: Spontaneous
  Country: US (occurrence: US)
  Receive Date: 20130417
  Receipt Date: 20130509
  Transmission Date: 20140414
  Serious: Yes (Other)
  Sender: FDA-Public Use
  Company Number: US-ELI_LILLY_AND_COMPANY-US201304001132

PATIENT
  Age: 36 Year
  Sex: Female

DRUGS (4)
  1. CYMBALTA [Suspect]
     Indication: DEPRESSION
     Dosage: 60 MG, QD
     Dates: end: 20130321
  2. CYMBALTA [Suspect]
     Dosage: 30 MG, UNKNOWN
     Dates: start: 20130328
  3. LEXAPRO [Concomitant]
  4. EFFEXOR [Concomitant]

REACTIONS (18)
  - Self-injurious ideation [Recovering/Resolving]
  - Serotonin syndrome [Recovering/Resolving]
  - Drug withdrawal syndrome [Recovering/Resolving]
  - Dyspnoea [Recovering/Resolving]
  - Disturbance in attention [Recovering/Resolving]
  - Hyperthermia [Recovering/Resolving]
  - Screaming [Recovering/Resolving]
  - Altered state of consciousness [Recovering/Resolving]
  - Tachypnoea [Recovering/Resolving]
  - Dizziness [Recovering/Resolving]
  - Feeling abnormal [Recovering/Resolving]
  - Chills [Recovering/Resolving]
  - Palpitations [Recovering/Resolving]
  - Blood pressure increased [Recovering/Resolving]
  - Restlessness [Recovering/Resolving]
  - Tachycardia [Recovering/Resolving]
  - Somnolence [Recovering/Resolving]
  - Malaise [Recovering/Resolving]
